FAERS Safety Report 4987360-8 (Version None)
Quarter: 2006Q2

REPORT INFORMATION
  Report Type: 
  Country: None (occurrence: None)
  Receive Date: 20060428
  Receipt Date: 20060428
  Transmission Date: 20061013
  Serious: Yes (Other)
  Sender: FDA-Public Use
  Company Number: None

PATIENT
  Age: 46 Year
  Sex: Male

DRUGS (1)
  1. THALIDOMIDE [Suspect]
     Indication: AMYOTROPHIC LATERAL SCLEROSIS
     Dosage: 300 MG /DAY
     Dates: start: 20060118

REACTIONS (4)
  - DISEASE PROGRESSION [None]
  - DYSPHAGIA [None]
  - HYPOKALAEMIA [None]
  - SINUS TACHYCARDIA [None]
